FAERS Safety Report 5922490-5 (Version None)
Quarter: 2008Q4

REPORT INFORMATION
  Report Type: 
  Country: None (occurrence: None)
  Receive Date: 20081017
  Receipt Date: 20081006
  Transmission Date: 20090506
  Serious: Yes (Other)
  Sender: FDA-Public Use
  Company Number: PHHY2008JP23999

PATIENT
  Sex: Female

DRUGS (2)
  1. TERNELIN [Suspect]
     Route: 048
  2. BACLOFEN [Suspect]
     Dosage: UNK
     Route: 048

REACTIONS (2)
  - HYPOPITUITARISM [None]
  - HYPOTHYROIDISM [None]
